FAERS Safety Report 4832710-6 (Version None)
Quarter: 2005Q4

REPORT INFORMATION
  Report Type: 
  Country: None (occurrence: None)
  Receive Date: 20051121
  Receipt Date: 20050712
  Transmission Date: 20060501
  Serious: Yes (Hospitalization, Disabling)
  Sender: FDA-Public Use
  Company Number: 200512349FR

PATIENT
  Age: 53 Year
  Sex: Female
  Weight: 145 kg

DRUGS (10)
  1. FLAGYL [Suspect]
     Indication: DIARRHOEA
     Route: 048
     Dates: start: 20050711, end: 20050711
  2. FLAGYL [Suspect]
     Indication: DIARRHOEA HAEMORRHAGIC
     Route: 048
     Dates: start: 20050711, end: 20050711
  3. HYZAAR [Concomitant]
  4. METFORMIN [Concomitant]
  5. VASTAREL [Concomitant]
     Route: 048
  6. DETENSIEL [Concomitant]
     Route: 048
  7. SIMVASTATIN [Concomitant]
  8. NEURONTIN [Concomitant]
     Route: 048
  9. RIVOTRIL [Concomitant]
     Route: 048
  10. INSULIN [Concomitant]

REACTIONS (6)
  - ARTHRALGIA [None]
  - CONDITION AGGRAVATED [None]
  - DYSSTASIA [None]
  - ENTEROCOLITIS HAEMORRHAGIC [None]
  - MYALGIA [None]
  - PERIPHERAL MOTOR NEUROPATHY [None]
